FAERS Safety Report 11779420 (Version 2)
Quarter: 2015Q4

REPORT INFORMATION
  Report Type: Spontaneous
  Country: US (occurrence: US)
  Receive Date: 20151125
  Receipt Date: 20151223
  Transmission Date: 20160304
  Serious: Yes (Hospitalization, Other)
  Sender: FDA-Public Use
  Company Number: US-BAUSCH-BL-2015-027305

PATIENT
  Sex: Female
  Weight: 49.94 kg

DRUGS (5)
  1. MYSOLINE [Suspect]
     Active Substance: PRIMIDONE
     Indication: EPILEPSY
     Dosage: FOR MANY YEARS
     Route: 048
  2. DILANTIN [Concomitant]
     Active Substance: PHENYTOIN
     Indication: EPILEPSY
     Route: 048
  3. MYSOLINE [Suspect]
     Active Substance: PRIMIDONE
     Route: 048
     Dates: start: 2007, end: 2009
  4. COREG [Concomitant]
     Active Substance: CARVEDILOL
     Indication: CARDIAC DISORDER
     Route: 048
  5. MYSOLINE [Suspect]
     Active Substance: PRIMIDONE
     Route: 048
     Dates: start: 20110620

REACTIONS (6)
  - Dysarthria [Recovered/Resolved]
  - Toxicity to various agents [Recovered/Resolved]
  - Feeling jittery [Recovered/Resolved]
  - Fall [Recovered/Resolved]
  - Cerebral thrombosis [Recovered/Resolved]
  - Sedation [Recovered/Resolved]

NARRATIVE: CASE EVENT DATE: 2009
